FAERS Safety Report 10517057 (Version 4)
Quarter: 2014Q4

REPORT INFORMATION
  Report Type: Report from Study
  Country: AU (occurrence: AU)
  Receive Date: 20141014
  Receipt Date: 20141216
  Transmission Date: 20150528
  Serious: Yes (Hospitalization)
  Sender: FDA-Public Use
  Company Number: AU-EISAI MEDICAL RESEARCH-E2007-01833-CLI-AU

PATIENT
  Age: 45 Year
  Sex: Female
  Weight: 80.1 kg

DRUGS (8)
  1. PLACEBO [Suspect]
     Active Substance: UNSPECIFIED INGREDIENT
     Indication: PARTIAL SEIZURES
     Dosage: DOUBLE-BLIND CORE STUDY
     Route: 048
     Dates: start: 20131223, end: 20140505
  2. PLACEBO [Suspect]
     Active Substance: UNSPECIFIED INGREDIENT
     Dosage: DOSE REDUCED BY 1 TABLET
     Route: 048
     Dates: start: 20140710, end: 20140714
  3. LEVETIRACETAM. [Suspect]
     Active Substance: LEVETIRACETAM
     Indication: EPILEPSY
     Route: 048
     Dates: start: 20130917, end: 20140722
  4. LEVETIRACETAM. [Suspect]
     Active Substance: LEVETIRACETAM
     Route: 048
     Dates: start: 20140723, end: 20140729
  5. PLACEBO [Suspect]
     Active Substance: UNSPECIFIED INGREDIENT
     Route: 048
     Dates: start: 20140715, end: 20140915
  6. LEVETIRACETAM. [Suspect]
     Active Substance: LEVETIRACETAM
     Route: 048
     Dates: start: 20140730, end: 20140731
  7. LACOSAMIDE [Concomitant]
     Active Substance: LACOSAMIDE
  8. PLACEBO [Suspect]
     Active Substance: UNSPECIFIED INGREDIENT
     Dosage: CONVERSION PERIOD
     Route: 048
     Dates: start: 20140617, end: 20140709

REACTIONS (2)
  - Aggression [Recovered/Resolved]
  - Psychotic disorder [Recovered/Resolved]

NARRATIVE: CASE EVENT DATE: 20140731
